FAERS Safety Report 8622055-0 (Version None)
Quarter: 2012Q3

REPORT INFORMATION
  Report Type: 
  Country: None (occurrence: None)
  Receive Date: 20120823
  Receipt Date: 20120823
  Transmission Date: 20120928
  Serious: Yes (Other)
  Sender: FDA-Public Use
  Company Number: None

PATIENT
  Age: 38 Year
  Sex: Female
  Weight: 86.1834 kg

DRUGS (1)
  1. MIRENA [Suspect]
     Dosage: 5YRS VAG
     Route: 067
     Dates: start: 20080401, end: 20100501

REACTIONS (3)
  - DYSPAREUNIA [None]
  - HYSTERECTOMY [None]
  - PAIN [None]
